FAERS Safety Report 15971263 (Version 1)
Quarter: 2019Q1

REPORT INFORMATION
  Report Type: Spontaneous
  Country: US (occurrence: US)
  Receive Date: 20190215
  Receipt Date: 20190215
  Transmission Date: 20190418
  Serious: Yes (Other)
  Sender: FDA-Public Use
  Company Number: PHEH2019US006870

PATIENT
  Sex: Male

DRUGS (1)
  1. TASIGNA [Suspect]
     Active Substance: NILOTINIB
     Indication: CHRONIC MYELOID LEUKAEMIA
     Dosage: 01 DF, BID
     Route: 048

REACTIONS (17)
  - Palpitations [Unknown]
  - Diastolic dysfunction [Unknown]
  - Cough [Unknown]
  - Dyspnoea [Unknown]
  - Hepatosplenomegaly [Unknown]
  - Chest pain [Unknown]
  - Coronary artery disease [Unknown]
  - Hypercholesterolaemia [Unknown]
  - Hyperhidrosis [Unknown]
  - Fatigue [Unknown]
  - Anaemia [Unknown]
  - Cardiac tamponade [Unknown]
  - Carotid artery stenosis [Unknown]
  - Pericardial effusion [Unknown]
  - Atrial fibrillation [Unknown]
  - Dizziness [Unknown]
  - Hyperlipidaemia [Unknown]
